FAERS Safety Report 6870941-4 (Version None)
Quarter: 2010Q3

REPORT INFORMATION
  Report Type: 
  Country: None (occurrence: None)
  Receive Date: 20100723
  Receipt Date: 20100715
  Transmission Date: 20110219
  Serious: Yes (Life-Threatening, Hospitalization)
  Sender: FDA-Public Use
  Company Number: FR-BRISTOL-MYERS SQUIBB COMPANY-14921456

PATIENT
  Age: 78 Year
  Sex: Male

DRUGS (5)
  1. GLUCOPHAGE [Suspect]
     Dosage: RENITEC WAS TAKEN AS CONMED.
     Route: 048
     Dates: end: 20080130
  2. ENALAPRIL MALEATE [Suspect]
     Route: 048
  3. KARDEGIC [Concomitant]
  4. GLUCOR [Concomitant]
  5. PRAXILENE [Concomitant]
     Route: 065

REACTIONS (7)
  - ACCIDENT [None]
  - CARDIO-RESPIRATORY ARREST [None]
  - HEART INJURY [None]
  - LACTIC ACIDOSIS [None]
  - MULTI-ORGAN FAILURE [None]
  - RENAL FAILURE ACUTE [None]
  - STERNAL FRACTURE [None]
